FAERS Safety Report 6739967-5 (Version None)
Quarter: 2010Q2

REPORT INFORMATION
  Report Type: 
  Country: None (occurrence: None)
  Receive Date: 20100525
  Receipt Date: 20100519
  Transmission Date: 20101027
  Serious: Yes (Hospitalization)
  Sender: FDA-Public Use
  Company Number: JP-ELI_LILLY_AND_COMPANY-JP201005005041

PATIENT

DRUGS (2)
  1. GEMCITABINE HCL [Suspect]
     Indication: BILE DUCT CANCER
     Dosage: UNK, OTHER
     Route: 042
     Dates: start: 20091215, end: 20100519
  2. BLINDED THERAPY [Suspect]
     Indication: BILE DUCT CANCER
     Dosage: UNK, OTHER
     Route: 058
     Dates: start: 20091215, end: 20100519

REACTIONS (1)
  - CHOLANGITIS [None]
